FAERS Safety Report 11521155 (Version 2)
Quarter: 2015Q4

REPORT INFORMATION
  Report Type: Spontaneous
  Country: ZA (occurrence: ZA)
  Receive Date: 20150918
  Receipt Date: 20151125
  Transmission Date: 20160304
  Serious: Yes (Other)
  Sender: FDA-Public Use
  Company Number: ZA-PFIZER INC-2015310987

PATIENT
  Age: 63 Year
  Sex: Male

DRUGS (2)
  1. XALATAN [Suspect]
     Active Substance: LATANOPROST
     Dosage: UNK, AT NIGHT DAILY
     Route: 047
     Dates: start: 2012
  2. XALATAN [Suspect]
     Active Substance: LATANOPROST
     Dosage: UNK, AT NIGHT DAILY
     Route: 047

REACTIONS (2)
  - Visual impairment [Not Recovered/Not Resolved]
  - Drug ineffective [Unknown]

NARRATIVE: CASE EVENT DATE: 2014
